FAERS Safety Report 15425982 (Version 1)
Quarter: 2018Q3

REPORT INFORMATION
  Report Type: Spontaneous
  Country: IT (occurrence: IT)
  Receive Date: 20180925
  Receipt Date: 20180925
  Transmission Date: 20181010
  Serious: Yes (Hospitalization, Other)
  Sender: FDA-Public Use
  Company Number: GXKR2009IT07844

PATIENT
  Age: 33 Year
  Sex: Male

DRUGS (6)
  1. BUPRENORPHINE. [Suspect]
     Active Substance: BUPRENORPHINE
     Indication: PRODUCT USED FOR UNKNOWN INDICATION
     Dosage: 20 MG, UNK
     Route: 060
  2. BUPRENORPHINE. [Suspect]
     Active Substance: BUPRENORPHINE
     Dosage: 20 MG, QD
     Route: 060
  3. CLONAZEPAM. [Suspect]
     Active Substance: CLONAZEPAM
     Indication: PRODUCT USED FOR UNKNOWN INDICATION
     Dosage: 2 MG, QD
     Route: 065
  4. PARACETAMOL [Suspect]
     Active Substance: ACETAMINOPHEN
     Indication: INFLUENZA LIKE ILLNESS
     Dosage: 4 G, OVER 72 HOURS
     Route: 065
  5. METHADONE [Suspect]
     Active Substance: METHADONE HYDROCHLORIDE
     Indication: DETOXIFICATION
     Dosage: UNK
     Route: 065
  6. GABAPENTIN. [Suspect]
     Active Substance: GABAPENTIN
     Indication: PRODUCT USED FOR UNKNOWN INDICATION
     Dosage: 300 MG, QD
     Route: 065

REACTIONS (14)
  - Alanine aminotransferase increased [Recovered/Resolved]
  - Prothrombin time prolonged [Recovered/Resolved]
  - Drug-induced liver injury [Recovered/Resolved]
  - Hepatic function abnormal [Recovered/Resolved]
  - Drug level increased [Recovered/Resolved]
  - Hepatic encephalopathy [Recovered/Resolved]
  - Drug ineffective [Unknown]
  - Acute hepatic failure [Recovered/Resolved with Sequelae]
  - Jaundice [Recovered/Resolved]
  - Renal failure [Recovered/Resolved]
  - Anuria [Recovered/Resolved]
  - Hepatic steatosis [Recovered/Resolved with Sequelae]
  - Cholestasis [Recovered/Resolved with Sequelae]
  - Influenza like illness [Recovered/Resolved]
